FAERS Safety Report 7376151-9 (Version None)
Quarter: 2011Q1

REPORT INFORMATION
  Report Type: 
  Country: None (occurrence: None)
  Receive Date: 20110325
  Receipt Date: 20110228
  Transmission Date: 20110831
  Serious: No
  Sender: FDA-Public Use
  Company Number: US-B.I. PHARMACEUTICALS,INC./RIDGEFIELD-2011-BP-05651BP

PATIENT
  Sex: Male

DRUGS (4)
  1. BIOTIN [Concomitant]
     Indication: PROPHYLAXIS
  2. PRADAXA [Suspect]
     Indication: ATRIAL FIBRILLATION
     Dosage: 300 MG
     Route: 048
     Dates: start: 20110201
  3. VITAMIN D [Concomitant]
     Indication: PROPHYLAXIS
  4. TOPROL-XL [Concomitant]
     Indication: ATRIAL FIBRILLATION

REACTIONS (4)
  - INCREASED APPETITE [None]
  - NIGHT SWEATS [None]
  - HOT FLUSH [None]
  - THIRST [None]
